FAERS Safety Report 7559179-5 (Version None)
Quarter: 2011Q2

REPORT INFORMATION
  Report Type: 
  Country: None (occurrence: None)
  Receive Date: 20110621
  Receipt Date: 20110621
  Transmission Date: 20111010
  Serious: Yes (Death, Other)
  Sender: FDA-Public Use
  Company Number: RU-PFIZER INC-2011061419

PATIENT
  Age: 27 Year
  Sex: Male

DRUGS (4)
  1. TYGACIL [Suspect]
     Dosage: 50 MG, 2X/DAY
     Route: 042
  2. TYGACIL [Suspect]
     Indication: PANCREATITIS ACUTE
     Dosage: 100 MG, SINGLE
     Route: 042
     Dates: start: 20110224, end: 20110224
  3. FLUCONAZOLE [Suspect]
     Indication: CANDIDIASIS
     Dosage: 400 MG PER DAY
     Route: 042
     Dates: start: 20110303
  4. FLUCONAZOLE [Suspect]
     Indication: PANCREATIC NECROSIS

REACTIONS (4)
  - CARDIOTOXICITY [None]
  - SINUS TACHYCARDIA [None]
  - CARDIAC ARREST [None]
  - ATRIAL FIBRILLATION [None]
